FAERS Safety Report 4459533-4 (Version None)
Quarter: 2004Q3

REPORT INFORMATION
  Report Type: 
  Country: None (occurrence: None)
  Receive Date: 20040910
  Receipt Date: 20040607
  Transmission Date: 20050211
  Serious: No
  Sender: FDA-Public Use
  Company Number: 2004218268US

PATIENT
  Age: 75 Year
  Sex: Male

DRUGS (1)
  1. BEXTRA [Suspect]
     Indication: INFECTION
     Dosage: 10 MG, QD
     Dates: start: 20040607

REACTIONS (1)
  - YAWNING [None]
